FAERS Safety Report 9806403 (Version 3)
Quarter: 2014Q1

REPORT INFORMATION
  Report Type: Spontaneous
  Country: GB (occurrence: None)
  Receive Date: 20140107
  Receipt Date: 20140210
  Transmission Date: 20141002
  Serious: Yes (Death, Other)
  Sender: FDA-Public Use
  Company Number: AUR-APL-2014-00030

PATIENT
  Age: 59 Year
  Sex: Male

DRUGS (9)
  1. CITALOPRAM [Suspect]
     Indication: DEPRESSION
     Route: 048
  2. AMISULPRIDE [Suspect]
     Indication: SCHIZOPHRENIA
     Route: 048
  3. CLOZARIL [Suspect]
     Indication: SCHIZOPHRENIA
     Route: 048
     Dates: start: 20100908
  4. LITHIUM (LITHIUM) [Suspect]
     Indication: SCHIZOPHRENIA
     Dates: start: 2010
  5. AMLODIPINE (AMLODIPINE) [Concomitant]
  6. AMOXICILLIN (AMOXICILLIN) [Concomitant]
  7. DOCUSATE (DOCUSATE) [Concomitant]
  8. SENNA (SENNA ALEXANDRINA) [Concomitant]
  9. SIMVASTATIN (SIMVASTATIN) [Concomitant]

REACTIONS (2)
  - Diabetes insipidus [None]
  - Hypernatraemia [None]
